FAERS Safety Report 4727750-1 (Version None)
Quarter: 2005Q3

REPORT INFORMATION
  Report Type: 
  Country: None (occurrence: None)
  Receive Date: 20050727
  Receipt Date: 20050719
  Transmission Date: 20060218
  Serious: Yes (Hospitalization)
  Sender: FDA-Public Use
  Company Number: 2005-07-1518

PATIENT
  Age: 41 Year
  Sex: Female

DRUGS (3)
  1. DESLORATADINE (SCH 34117) TABLETS [Suspect]
     Indication: RHINITIS
     Dosage: 5 MG QD ORAL
     Route: 048
  2. ALBUTEROL SULFATE HFA [Concomitant]
  3. STEROIDS (NOS) [Concomitant]

REACTIONS (5)
  - ALANINE AMINOTRANSFERASE INCREASED [None]
  - ASPARTATE AMINOTRANSFERASE INCREASED [None]
  - BILIARY COLIC [None]
  - BLOOD ALKALINE PHOSPHATASE INCREASED [None]
  - GAMMA-GLUTAMYLTRANSFERASE INCREASED [None]
